FAERS Safety Report 9910838 (Version 1)
Quarter: 2014Q1

REPORT INFORMATION
  Report Type: Spontaneous
  Country: GB (occurrence: GB)
  Receive Date: 20140219
  Receipt Date: 20140219
  Transmission Date: 20141002
  Serious: Yes (Hospitalization)
  Sender: FDA-Public Use
  Company Number: GB-ACTAVIS-2014-02533

PATIENT
  Age: 79 Year
  Sex: Male

DRUGS (4)
  1. DICLOFENAC (UNKNOWN) [Suspect]
     Indication: ANALGESIC THERAPY
     Dosage: 50 MG, UNKNOWN
     Route: 048
     Dates: end: 20140120
  2. KEPPRA [Concomitant]
     Indication: PRODUCT USED FOR UNKNOWN INDICATION
     Dosage: UNK
     Route: 048
  3. EPILIM [Concomitant]
     Indication: PRODUCT USED FOR UNKNOWN INDICATION
     Dosage: UNK
     Route: 048
  4. TRAVOPROST [Concomitant]
     Indication: PRODUCT USED FOR UNKNOWN INDICATION
     Dosage: UNK
     Route: 050

REACTIONS (1)
  - Acute myocardial infarction [Recovering/Resolving]
